FAERS Safety Report 4487849-4 (Version None)
Quarter: 2004Q4

REPORT INFORMATION
  Report Type: 
  Country: None (occurrence: None)
  Receive Date: 20041027
  Receipt Date: 20041027
  Transmission Date: 20050328
  Serious: Yes (Hospitalization)
  Sender: FDA-Public Use
  Company Number: None

PATIENT
  Age: 34 Year
  Sex: Male
  Weight: 71.2147 kg

DRUGS (1)
  1. ABACAVIR [Suspect]
     Dosage: 300 MG BID

REACTIONS (3)
  - JAUNDICE [None]
  - NAUSEA [None]
  - PYREXIA [None]
